FAERS Safety Report 9003663 (Version 1)
Quarter: 2013Q1

REPORT INFORMATION
  Report Type: Spontaneous
  Country: US (occurrence: US)
  Receive Date: 20130108
  Receipt Date: 20130108
  Transmission Date: 20140127
  Serious: No
  Sender: FDA-Public Use
  Company Number: US-GLAXOSMITHKLINE-A0957113A

PATIENT
  Age: 76 Year
  Sex: Male

DRUGS (6)
  1. LOVAZA [Suspect]
     Indication: BLOOD TRIGLYCERIDES INCREASED
     Dosage: 4CAP PER DAY
     Route: 048
     Dates: start: 20111116
  2. LEXAPRO [Suspect]
     Indication: DEPRESSION
     Dosage: 1TAB PER DAY
     Route: 048
     Dates: start: 201109, end: 20111015
  3. ANDROGEL [Concomitant]
  4. ZOCOR [Concomitant]
  5. HYZAAR [Concomitant]
  6. NIACIN [Concomitant]
     Indication: BLOOD TRIGLYCERIDES INCREASED

REACTIONS (3)
  - Dysgeusia [Not Recovered/Not Resolved]
  - Ageusia [Unknown]
  - Erectile dysfunction [Unknown]
